FAERS Safety Report 26102504 (Version 1)
Quarter: 2025Q4

REPORT INFORMATION
  Report Type: Spontaneous
  Country: EU (occurrence: EU)
  Receive Date: 20251128
  Receipt Date: 20251128
  Transmission Date: 20260117
  Serious: Yes (Other)
  Sender: GILEAD
  Company Number: EU-GILEAD-2025-0738734

PATIENT
  Age: 53 Year
  Sex: Female

DRUGS (1)
  1. YESCARTA [Suspect]
     Active Substance: AXICABTAGENE CILOLEUCEL
     Indication: Diffuse large B-cell lymphoma
     Dosage: UNK
     Route: 065
     Dates: start: 20250317

REACTIONS (2)
  - Agranulocytosis [Unknown]
  - Cytokine release syndrome [Unknown]
